FAERS Safety Report 5131978-9 (Version None)
Quarter: 2006Q4

REPORT INFORMATION
  Report Type: 
  Country: None (occurrence: None)
  Receive Date: 20061017
  Receipt Date: 20061010
  Transmission Date: 20070319
  Serious: Yes (Hospitalization)
  Sender: FDA-Public Use
  Company Number: 2006BI010600

PATIENT
  Age: 57 Year
  Sex: Female

DRUGS (14)
  1. AVONEX [Suspect]
     Indication: MULTIPLE SCLEROSIS
     Dosage: 30 UG; QW; IM
     Route: 030
     Dates: start: 19980501, end: 20030801
  2. AVONEX [Suspect]
     Indication: MULTIPLE SCLEROSIS
     Dosage: 30 UG; QW; IM
     Route: 030
     Dates: start: 20030801
  3. SYNTHROID [Concomitant]
  4. TRAZODONE HCL [Concomitant]
  5. NAPROXEN [Concomitant]
  6. PROVIGIL [Concomitant]
  7. CELEXA [Concomitant]
  8. FOSAMAX [Concomitant]
  9. SYSTALINE EYE DROPS [Concomitant]
  10. BACLOFEN [Concomitant]
  11. OSCAL [Concomitant]
  12. GLUCOSAMINE CHONDROITIN [Concomitant]
  13. VITAMIN E [Concomitant]
  14. PRIMROSE OIL [Concomitant]

REACTIONS (4)
  - ARTHRITIS [None]
  - EXOSTOSIS [None]
  - HIP ARTHROPLASTY [None]
  - OSTEOARTHRITIS [None]
